FAERS Safety Report 9287983 (Version 1)
Quarter: 2013Q2

REPORT INFORMATION
  Report Type: Spontaneous
  Country: GB (occurrence: GB)
  Receive Date: 20130514
  Receipt Date: 20130514
  Transmission Date: 20140414
  Serious: Yes (Other)
  Sender: FDA-Public Use
  Company Number: GB-BRISTOL-MYERS SQUIBB COMPANY-18866335

PATIENT
  Age: 65 Year
  Sex: Male

DRUGS (12)
  1. EXENATIDE [Suspect]
     Indication: DIABETES MELLITUS
     Route: 058
     Dates: start: 201107, end: 201109
  2. METFORMIN [Concomitant]
  3. IBUPROFEN [Concomitant]
  4. QUININE SULFATE [Concomitant]
  5. CO-CODAMOL [Concomitant]
  6. PIOGLITAZONE HCL [Concomitant]
  7. ASPIRIN [Concomitant]
  8. CALCICHEW [Concomitant]
  9. CANDESARTAN [Concomitant]
  10. FORCEVAL [Concomitant]
  11. TADALAFIL [Concomitant]
  12. LANSOPRAZOLE [Concomitant]

REACTIONS (4)
  - Photosensitivity reaction [Recovered/Resolved]
  - Paraesthesia [Recovered/Resolved]
  - Burning sensation [Recovered/Resolved]
  - Rash erythematous [Recovered/Resolved]
